FAERS Safety Report 16197355 (Version 2)
Quarter: 2019Q2

REPORT INFORMATION
  Report Type: Report from Study
  Country: IT (occurrence: IT)
  Receive Date: 20190415
  Receipt Date: 20190527
  Transmission Date: 20190711
  Serious: Yes (Hospitalization)
  Sender: FDA-Public Use
  Company Number: IT-BEH-2019101273

PATIENT
  Age: 22 Year
  Sex: Male
  Weight: 80 kg

DRUGS (2)
  1. IDELVION [Suspect]
     Active Substance: COAGULATION FACTOR IX RECOMBINANT HUMAN
     Dosage: 4000 IU (50 IU/KG), EVERY 10 DAYS
     Route: 042
     Dates: start: 20190211
  2. IDELVION [Suspect]
     Active Substance: COAGULATION FACTOR IX RECOMBINANT HUMAN
     Indication: FACTOR IX DEFICIENCY
     Dosage: 4000 IU (50 IU/KG), EVERY 10 DAYS
     Route: 042
     Dates: start: 20170619

REACTIONS (2)
  - Anaemia [Recovered/Resolved]
  - Melaena [Recovered/Resolved]

NARRATIVE: CASE EVENT DATE: 20190221
